FAERS Safety Report 4412234-0 (Version None)
Quarter: 2004Q3

REPORT INFORMATION
  Report Type: 
  Country: None (occurrence: None)
  Receive Date: 20040727
  Receipt Date: 20040715
  Transmission Date: 20050211
  Serious: Yes (Other)
  Sender: FDA-Public Use
  Company Number: US-JNJFOC-20040704861

PATIENT
  Sex: Male

DRUGS (1)
  1. DURAGESIC [Suspect]
     Dosage: 75 UG/HR, TRANSDERMAL
     Route: 062
     Dates: start: 20040206

REACTIONS (6)
  - BARRETT'S OESOPHAGUS [None]
  - DRUG WITHDRAWAL SYNDROME [None]
  - FEELING ABNORMAL [None]
  - GASTROOESOPHAGEAL REFLUX DISEASE [None]
  - HYPERHIDROSIS [None]
  - VOMITING [None]
